FAERS Safety Report 7945915-2 (Version None)
Quarter: 2011Q4

REPORT INFORMATION
  Report Type: 
  Country: None (occurrence: None)
  Receive Date: 20111129
  Receipt Date: 20111118
  Transmission Date: 20120403
  Serious: Yes (Other)
  Sender: FDA-Public Use
  Company Number: PHFR2011GB00470

PATIENT
  Sex: Male

DRUGS (6)
  1. CLONAZEPAM [Concomitant]
     Route: 065
  2. CLOZARIL [Suspect]
     Indication: SCHIZOPHRENIA
     Route: 048
     Dates: start: 20100105
  3. OPIOIDS [Suspect]
     Route: 065
  4. METHADONE HYDROCHLORIDE [Suspect]
     Route: 065
  5. AMPHETAMINE [Suspect]
     Route: 065
  6. ACETAMINOPHEN AND CODEINE PHOSPHATE [Concomitant]
     Route: 065

REACTIONS (8)
  - AGITATION [None]
  - URINE AMPHETAMINE POSITIVE [None]
  - DYSSTASIA [None]
  - POISONING [None]
  - OCULAR HYPERAEMIA [None]
  - SOMNOLENCE [None]
  - DYSARTHRIA [None]
  - DRUG ABUSE [None]
